FAERS Safety Report 7548041-X (Version None)
Quarter: 2011Q2

REPORT INFORMATION
  Report Type: 
  Country: None (occurrence: None)
  Receive Date: 20110524
  Receipt Date: 20110304
  Transmission Date: 20111010
  Serious: No
  Sender: FDA-Public Use
  Company Number: 026634

PATIENT
  Sex: Female
  Weight: 79.4 kg

DRUGS (11)
  1. HYDROXYZINE [Concomitant]
  2. FUROSEMIDE [Concomitant]
  3. LEVOTHYROXINE SODIUM [Concomitant]
  4. SIMVASTATIN [Concomitant]
  5. BACLOFEN [Concomitant]
  6. PRILOSEC [Concomitant]
  7. CYMBALTA [Concomitant]
  8. OXYCODONE HCL [Concomitant]
  9. GLYBURIDE [Concomitant]
  10. CIMZIA [Suspect]
     Indication: CROHN'S DISEASE
     Dosage: 400 MG1X/4 WEEKS, LAST DOSE ON 04-MAR-2011 SUBCUTANEOUS
     Route: 058
     Dates: start: 20101207
  11. PREDNISONE [Concomitant]

REACTIONS (10)
  - INSOMNIA [None]
  - SLUGGISHNESS [None]
  - NASOPHARYNGITIS [None]
  - FALL [None]
  - IMPAIRED HEALING [None]
  - COUGH [None]
  - UPPER RESPIRATORY TRACT INFECTION [None]
  - OEDEMA PERIPHERAL [None]
  - FATIGUE [None]
  - ALOPECIA [None]
